FAERS Safety Report 11558469 (Version 1)
Quarter: 2015Q3

REPORT INFORMATION
  Report Type: Spontaneous
  Country: US (occurrence: None)
  Receive Date: 20150925
  Receipt Date: 20150925
  Transmission Date: 20151125
  Serious: No
  Sender: FDA-Public Use
  Company Number: None

PATIENT
  Age: 55 Year
  Sex: Male

DRUGS (1)
  1. GLATOPA [Suspect]
     Active Substance: GLATIRAMER ACETATE
     Indication: MULTIPLE SCLEROSIS
     Route: 058
     Dates: start: 20150707, end: 20150922

REACTIONS (5)
  - Drug ineffective [None]
  - Furuncle [None]
  - Burning sensation [None]
  - Headache [None]
  - Hypoaesthesia [None]

NARRATIVE: CASE EVENT DATE: 20150922
